FAERS Safety Report 4893544-X (Version None)
Quarter: 2005Q4

REPORT INFORMATION
  Report Type: 
  Country: None (occurrence: None)
  Receive Date: 20051223
  Receipt Date: 20050614
  Transmission Date: 20060501
  Serious: Yes (Other)
  Sender: FDA-Public Use
  Company Number: PHEH2005US05918

PATIENT
  Age: 41 Year
  Sex: Male

DRUGS (5)
  1. CLOZARIL [Suspect]
     Indication: PSYCHOTIC DISORDER
     Dosage: 775 MG, BID, ORAL
     Route: 048
     Dates: start: 20050104
  2. HALDOL [Concomitant]
  3. NEXIUM [Concomitant]
  4. ATIVAN [Concomitant]
  5. DEPAKOTE [Concomitant]

REACTIONS (6)
  - BASOPHIL COUNT DECREASED [None]
  - EOSINOPHIL COUNT DECREASED [None]
  - EXTRAPYRAMIDAL DISORDER [None]
  - HALLUCINATION [None]
  - HYPERLIPIDAEMIA [None]
  - INJURY [None]
